FAERS Safety Report 6810470-7 (Version None)
Quarter: 2010Q2

REPORT INFORMATION
  Report Type: 
  Country: None (occurrence: None)
  Receive Date: 20100630
  Receipt Date: 20100624
  Transmission Date: 20101027
  Serious: Yes (Death, Hospitalization, Other)
  Sender: FDA-Public Use
  Company Number: PL-ROXANE LABORATORIES, INC.-2010-RO-00761RO

PATIENT
  Age: 76 Year
  Sex: Female

DRUGS (13)
  1. METHOTREXATE [Suspect]
     Indication: ARTHROPATHY
  2. FLUCONAZOLE [Suspect]
     Route: 042
  3. DEXAMETHASONE [Suspect]
     Route: 042
  4. SOTALOL HCL [Suspect]
  5. TELMISARTAN [Suspect]
     Dosage: 80 MG
  6. HYDROCHLOROTHIAZIDE [Suspect]
     Dosage: 25 MG
  7. METFORMIN HCL [Suspect]
  8. GLICLAZIDE [Suspect]
  9. NONSTEROIDAL ANTIINFLAMMATORY DRUGS [Suspect]
     Indication: ARTHRALGIA
  10. GENTAMICIN [Suspect]
     Route: 042
  11. AMOXICILLIN AND CLAVULANATE POTASSIUM [Suspect]
     Route: 042
  12. NEUPOGEN [Suspect]
     Route: 058
  13. DICLOFENAC SODIUM [Concomitant]
     Indication: ARTHROPATHY

REACTIONS (6)
  - CARDIO-RESPIRATORY ARREST [None]
  - DRUG INEFFECTIVE [None]
  - DYSPNOEA [None]
  - GENERAL PHYSICAL HEALTH DETERIORATION [None]
  - MUCOSAL EROSION [None]
  - PANCYTOPENIA [None]
